FAERS Safety Report 20146072 (Version 1)
Quarter: 2021Q4

REPORT INFORMATION
  Report Type: Spontaneous
  Country: US (occurrence: None)
  Receive Date: 20211203
  Receipt Date: 20211203
  Transmission Date: 20220303
  Serious: Yes (Hospitalization)
  Sender: FDA-Public Use
  Company Number: None

PATIENT
  Age: 58 Year
  Sex: Male
  Weight: 95 kg

DRUGS (1)
  1. WARFARIN [Suspect]
     Active Substance: WARFARIN
     Indication: Pulmonary embolism
     Dosage: FREQUENCY : DAILY;?
     Route: 048
     Dates: start: 20071101, end: 20211123

REACTIONS (1)
  - Subdural haemorrhage [None]

NARRATIVE: CASE EVENT DATE: 20211123
